FAERS Safety Report 9374992 (Version 1)
Quarter: 2013Q2

REPORT INFORMATION
  Report Type: Spontaneous
  Country: DE (occurrence: DE)
  Receive Date: 20130628
  Receipt Date: 20130628
  Transmission Date: 20140414
  Serious: Yes (Other)
  Sender: FDA-Public Use
  Company Number: PHHY2013DE066233

PATIENT
  Age: 48 Year
  Sex: Male

DRUGS (4)
  1. AFINITOR [Suspect]
     Dosage: 10 MG, QD
     Dates: start: 201201
  2. ZOMETA [Suspect]
     Dosage: UNK, QMO
  3. BUPRENORPHINE [Concomitant]
     Indication: BACK PAIN
     Dosage: UNK
     Dates: start: 2007
  4. NOVAMINSULFON [Concomitant]

REACTIONS (2)
  - Inguinal hernia [Not Recovered/Not Resolved]
  - Anaemia [Not Recovered/Not Resolved]
